FAERS Safety Report 5273101-6 (Version None)
Quarter: 2007Q1

REPORT INFORMATION
  Report Type: 
  Country: None (occurrence: None)
  Receive Date: 20070322
  Receipt Date: 20070313
  Transmission Date: 20070707
  Serious: Yes (Death, Congenital Anomaly)
  Sender: FDA-Public Use
  Company Number: NL-PFIZER INC-2007007797

PATIENT
  Sex: Male

DRUGS (2)
  1. DIFLUCAN [Suspect]
     Indication: VAGINAL CANDIDIASIS
     Route: 048
     Dates: start: 20060816, end: 20060816
  2. ALL OTHER THERAPEUTIC PRODUCTS [Concomitant]

REACTIONS (3)
  - ANENCEPHALY [None]
  - DEATH [None]
  - DRUG EXPOSURE DURING PREGNANCY [None]
